FAERS Safety Report 24462179 (Version 4)
Quarter: 2025Q1

REPORT INFORMATION
  Report Type: Spontaneous
  Country: US (occurrence: US)
  Receive Date: 20241018
  Receipt Date: 20250326
  Transmission Date: 20250409
  Serious: Yes (Death, Hospitalization)
  Sender: JOHNSON AND JOHNSON
  Company Number: US-JNJFOC-20241032889

PATIENT
  Age: 67 Year
  Sex: Male

DRUGS (16)
  1. CARVYKTI [Suspect]
     Active Substance: CILTACABTAGENE AUTOLEUCEL
     Indication: Plasma cell myeloma
     Route: 065
  2. BORTEZOMIB [Concomitant]
     Active Substance: BORTEZOMIB
     Indication: Plasma cell myeloma
  3. SELINEXOR [Concomitant]
     Active Substance: SELINEXOR
     Indication: Plasma cell myeloma
  4. DEXAMETHASONE [Concomitant]
     Active Substance: DEXAMETHASONE
     Indication: Plasma cell myeloma
  5. FLUDARABINE [Concomitant]
     Active Substance: FLUDARABINE PHOSPHATE
     Indication: Plasma cell myeloma
  6. CYCLOPHOSPHAMIDE [Concomitant]
     Active Substance: CYCLOPHOSPHAMIDE
     Indication: Plasma cell myeloma
  7. ACYCLOVIR [Concomitant]
     Active Substance: ACYCLOVIR
  8. ASPIRIN [Concomitant]
     Active Substance: ASPIRIN
  9. BRIMONIDINE [Concomitant]
     Active Substance: BRIMONIDINE TARTRATE
  10. FAMOTIDINE [Concomitant]
     Active Substance: FAMOTIDINE
  11. FINASTERIDE [Concomitant]
     Active Substance: FINASTERIDE
  12. GABAPENTIN [Concomitant]
     Active Substance: GABAPENTIN
  13. LIDOCAINE [Concomitant]
     Active Substance: LIDOCAINE
  14. LATANOPROST [Concomitant]
     Active Substance: LATANOPROST
  15. MORPHINE [Concomitant]
     Active Substance: MORPHINE
  16. SENNA LEAF [Concomitant]
     Active Substance: SENNA LEAF

REACTIONS (15)
  - Sepsis [Fatal]
  - Haemoptysis [Fatal]
  - Respiratory failure [Recovering/Resolving]
  - Pulmonary mucormycosis [Recovering/Resolving]
  - Pancytopenia [Not Recovered/Not Resolved]
  - Hypoxic-ischaemic encephalopathy [Recovering/Resolving]
  - Pneumonia respiratory syncytial viral [Recovering/Resolving]
  - Cytokine release syndrome [Recovered/Resolved]
  - Immune effector cell-associated neurotoxicity syndrome [Recovered/Resolved]
  - Parkinsonism [Recovering/Resolving]
  - Lymphopenia [Not Recovered/Not Resolved]
  - Plasma cell myeloma [Unknown]
  - Plasmacytoma [Unknown]
  - Respiratory distress [Recovering/Resolving]
  - Pneumonia staphylococcal [Recovering/Resolving]
